FAERS Safety Report 9834114 (Version 2)
Quarter: 2014Q4

REPORT INFORMATION
  Report Type: Spontaneous
  Country: US (occurrence: US)
  Receive Date: 20140122
  Receipt Date: 20141120
  Transmission Date: 20150529
  Serious: No
  Sender: FDA-Public Use
  Company Number: US-009507513-1401USA007277

PATIENT
  Age: 4 Year
  Sex: Male

DRUGS (4)
  1. SINGULAIR [Concomitant]
     Active Substance: MONTELUKAST SODIUM
     Route: 048
  2. ASMANEX [Suspect]
     Active Substance: MOMETASONE FUROATE
     Indication: ASTHMA
     Dosage: ONE INHALATION DAILY
     Route: 055
     Dates: start: 2014
  3. ASMANEX [Suspect]
     Active Substance: MOMETASONE FUROATE
     Dosage: 1 PUFF, QD
     Route: 055
     Dates: start: 20140112
  4. CLARITIN [Concomitant]
     Active Substance: LORATADINE
     Route: 048

REACTIONS (7)
  - Cough [Not Recovered/Not Resolved]
  - Vomiting [Not Recovered/Not Resolved]
  - Product quality issue [Unknown]
  - Asthma [Not Recovered/Not Resolved]
  - Drug dose omission [Unknown]
  - Drug dose omission [Unknown]
  - Product quality issue [Unknown]

NARRATIVE: CASE EVENT DATE: 2014
